FAERS Safety Report 4971532-2 (Version None)
Quarter: 2006Q2

REPORT INFORMATION
  Report Type: 
  Country: None (occurrence: None)
  Receive Date: 20060407
  Receipt Date: 20060403
  Transmission Date: 20061013
  Serious: Yes (Other)
  Sender: FDA-Public Use
  Company Number: 24739

PATIENT
  Age: 37 Year
  Sex: Male
  Weight: 61.2356 kg

DRUGS (3)
  1. NIASPAN [Suspect]
     Indication: BLOOD CHOLESTEROL INCREASED
     Dates: start: 20060201, end: 20060201
  2. ZOLOFT /USA/ [Concomitant]
  3. ASPIRIN [Concomitant]

REACTIONS (3)
  - CONVULSION [None]
  - FEELING HOT [None]
  - FLUSHING [None]
